FAERS Safety Report 25534845 (Version 2)
Quarter: 2025Q3

REPORT INFORMATION
  Report Type: Spontaneous
  Country: AR (occurrence: AR)
  Receive Date: 20250709
  Receipt Date: 20250730
  Transmission Date: 20251021
  Serious: No
  Sender: PFIZER
  Company Number: AR-PFIZER INC-202500129079

PATIENT
  Age: 12 Year
  Sex: Male

DRUGS (1)
  1. NGENLA [Suspect]
     Active Substance: SOMATROGON-GHLA
     Indication: Growth hormone deficiency
     Dosage: 24 MG, WEEKLY
     Dates: start: 20250615, end: 20250629

REACTIONS (2)
  - Injection site pain [Not Recovered/Not Resolved]
  - Intentional product misuse [Unknown]

NARRATIVE: CASE EVENT DATE: 20250601
